FAERS Safety Report 11191301 (Version 1)
Quarter: 2015Q2

REPORT INFORMATION
  Report Type: Spontaneous
  Country: US (occurrence: US)
  Receive Date: 20150616
  Receipt Date: 20150616
  Transmission Date: 20150821
  Serious: Yes (Hospitalization, Other)
  Sender: FDA-Public Use
  Company Number: US-ALEMBIC PHARMACEUTICALS LIMITED-2015SCAL000314

PATIENT
  Age: 47 Year
  Sex: Male

DRUGS (5)
  1. CLONIDINE HYDROCHLORIDE. [Suspect]
     Active Substance: CLONIDINE HYDROCHLORIDE
     Indication: BACK PAIN
     Dosage: 550 MCG, QD, PUMP
     Route: 037
  2. CLONIDINE HYDROCHLORIDE. [Suspect]
     Active Substance: CLONIDINE HYDROCHLORIDE
     Dosage: UNK
     Route: 048
  3. CLONIDINE HYDROCHLORIDE. [Suspect]
     Active Substance: CLONIDINE HYDROCHLORIDE
     Dosage: 25 MCG, EVERY 5-10 MINUTES, REPEATED BOLUSES
  4. CLONIDINE HYDROCHLORIDE. [Suspect]
     Active Substance: CLONIDINE HYDROCHLORIDE
     Dosage: 150 MCG/HOUR INFUSION
     Route: 042
  5. CLONIDINE HYDROCHLORIDE. [Suspect]
     Active Substance: CLONIDINE HYDROCHLORIDE
     Dosage: 150 MCG, LOADING-DOSE
     Route: 042

REACTIONS (6)
  - Product use issue [Unknown]
  - Hypertensive crisis [Unknown]
  - Stress cardiomyopathy [Recovered/Resolved]
  - Back pain [Unknown]
  - Drug withdrawal syndrome [Unknown]
  - Device infusion issue [Unknown]
